FAERS Safety Report 18762598 (Version 1)
Quarter: 2021Q1

REPORT INFORMATION
  Report Type: Spontaneous
  Country: CA (occurrence: CA)
  Receive Date: 20210120
  Receipt Date: 20210120
  Transmission Date: 20210419
  Serious: Yes (Other)
  Sender: FDA-Public Use
  Company Number: CA-PFIZER INC-2021028256

PATIENT
  Sex: Female

DRUGS (1)
  1. RITUXIMAB. [Suspect]
     Active Substance: RITUXIMAB
     Indication: ASTHMA
     Dosage: 700 MG, WEEKLY (1 EVERY 1 WEEKS)
     Route: 042

REACTIONS (3)
  - Skin ulcer [Unknown]
  - Intentional product use issue [Unknown]
  - Off label use [Unknown]
